FAERS Safety Report 18087248 (Version 1)
Quarter: 2020Q3

REPORT INFORMATION
  Report Type: Spontaneous
  Country: US (occurrence: US)
  Receive Date: 20200728
  Receipt Date: 20200728
  Transmission Date: 20201103
  Serious: No
  Sender: FDA-Public Use
  Company Number: None

PATIENT
  Age: 59 Year
  Sex: Male

DRUGS (1)
  1. IOHEXOL (IOHEXOL 12MG/ML SOLN, ORAL) [Suspect]
     Active Substance: IOHEXOL
     Dates: start: 20200724, end: 20200724

REACTIONS (10)
  - Hypertension [None]
  - Scan abnormal [None]
  - Presyncope [None]
  - Haemoptysis [None]
  - Paralysis [None]
  - Myoclonus [None]
  - Ventilation/perfusion scan [None]
  - Pupils unequal [None]
  - Cardio-respiratory arrest [None]
  - Supraventricular extrasystoles [None]

NARRATIVE: CASE EVENT DATE: 20200724
